FAERS Safety Report 7103299-6 (Version None)
Quarter: 2010Q4

REPORT INFORMATION
  Report Type: 
  Country: None (occurrence: None)
  Receive Date: 20101115
  Receipt Date: 20101112
  Transmission Date: 20110411
  Serious: Yes (Life-Threatening)
  Sender: FDA-Public Use
  Company Number: GB-TEVA-255129ISR

PATIENT
  Sex: Male

DRUGS (6)
  1. ATENOLOL [Suspect]
     Route: 048
     Dates: start: 20011001
  2. DICLOFENAC SODIUM [Suspect]
     Indication: PAIN
     Route: 048
  3. PREDNISOLONE [Suspect]
     Indication: SYSTEMIC LUPUS ERYTHEMATOSUS
     Route: 048
     Dates: start: 20010101
  4. RAMIPRIL [Suspect]
     Route: 048
     Dates: start: 20061001, end: 20101022
  5. HYDROXYCHLOROQUINE SULFATE [Suspect]
     Indication: SYSTEMIC LUPUS ERYTHEMATOSUS
     Dates: start: 20100101
  6. ROSUVASTATIN [Suspect]
     Indication: HYPERCHOLESTEROLAEMIA
     Route: 048
     Dates: start: 20090101

REACTIONS (1)
  - ANGIOEDEMA [None]
